FAERS Safety Report 5702352-9 (Version None)
Quarter: 2008Q2

REPORT INFORMATION
  Report Type: 
  Country: None (occurrence: None)
  Receive Date: 20080411
  Receipt Date: 20080404
  Transmission Date: 20081010
  Serious: Yes (Disabling, Other)
  Sender: FDA-Public Use
  Company Number: PT-BRISTOL-MYERS SQUIBB COMPANY-14139851

PATIENT
  Age: 49 Year
  Sex: Female
  Weight: 64 kg

DRUGS (2)
  1. HYDREA [Suspect]
     Route: 048
     Dates: start: 20080219, end: 20080303
  2. IMATINIB MESYLATE [Suspect]

REACTIONS (2)
  - LUNG INFECTION [None]
  - PAIN IN EXTREMITY [None]
